FAERS Safety Report 14952283 (Version 1)
Quarter: 2018Q2

REPORT INFORMATION
  Report Type: Spontaneous
  Country: US (occurrence: US)
  Receive Date: 20180509
  Receipt Date: 20180509
  Transmission Date: 20180711
  Serious: Yes (Hospitalization, Other)
  Sender: FDA-Public Use
  Company Number: None

PATIENT
  Age: 70 Year
  Sex: Male

DRUGS (1)
  1. METHOTREXATE. [Suspect]
     Active Substance: METHOTREXATE
     Indication: RHEUMATOID ARTHRITIS
     Route: 048
     Dates: start: 20171220, end: 20180312

REACTIONS (6)
  - Renal impairment [None]
  - Pancytopenia [None]
  - Acute respiratory failure [None]
  - Toxicity to various agents [None]
  - Thrombocytopenia [None]
  - Haemodialysis [None]

NARRATIVE: CASE EVENT DATE: 20180317
